FAERS Safety Report 16377051 (Version 8)
Quarter: 2022Q2

REPORT INFORMATION
  Report Type: Spontaneous
  Country: US (occurrence: US)
  Receive Date: 20190531
  Receipt Date: 20220525
  Transmission Date: 20220721
  Serious: No
  Sender: FDA-Public Use
  Company Number: US-PFIZER INC-2019229550

PATIENT
  Age: 66 Year
  Sex: Female
  Weight: 71.202 kg

DRUGS (2)
  1. IBRANCE [Suspect]
     Active Substance: PALBOCICLIB
     Indication: Breast cancer metastatic
     Dosage: 125 MG, 1X/DAY
     Route: 048
     Dates: start: 201809
  2. IBRANCE [Suspect]
     Active Substance: PALBOCICLIB
     Dosage: 125 MG

REACTIONS (5)
  - Neoplasm progression [Unknown]
  - Product administration error [Unknown]
  - White blood cell count decreased [Not Recovered/Not Resolved]
  - Red blood cell count decreased [Not Recovered/Not Resolved]
  - Neutrophil count decreased [Not Recovered/Not Resolved]

NARRATIVE: CASE EVENT DATE: 20190101
